FAERS Safety Report 9320242 (Version 2)
Quarter: 2013Q3

REPORT INFORMATION
  Report Type: Report from Study
  Country: GB (occurrence: GB)
  Receive Date: 20130530
  Receipt Date: 20130709
  Transmission Date: 20140515
  Serious: Yes (Hospitalization)
  Sender: FDA-Public Use
  Company Number: GB-BAXTER-2013BAX019742

PATIENT
  Age: 3 Year
  Sex: Male
  Weight: 16 kg

DRUGS (16)
  1. IFOSFAMIDE 40 MG/ML SOLUTION FOR INFUSION [Suspect]
     Indication: NEOPLASM MALIGNANT
     Route: 042
     Dates: start: 20130504
  2. IFOSFAMIDE 40 MG/ML SOLUTION FOR INFUSION [Suspect]
     Route: 042
     Dates: start: 20130505
  3. VINCRISTINE [Suspect]
     Indication: NEOPLASM MALIGNANT
     Route: 040
     Dates: start: 20130504
  4. VINCRISTINE [Suspect]
     Route: 040
     Dates: start: 20130510
  5. DACTINOMYCIN [Suspect]
     Indication: NEOPLASM MALIGNANT
     Route: 040
     Dates: start: 20130504
  6. DOXORUBICIN [Suspect]
     Indication: NEOPLASM MALIGNANT
     Route: 040
     Dates: start: 20130504
  7. DOXORUBICIN [Suspect]
     Route: 040
     Dates: start: 20130505
  8. ONDANSETRON [Concomitant]
     Indication: PRODUCT USED FOR UNKNOWN INDICATION
     Route: 065
     Dates: start: 20130504
  9. DEXAMETHASONE [Concomitant]
     Indication: PRODUCT USED FOR UNKNOWN INDICATION
     Route: 065
     Dates: start: 20130504, end: 20130505
  10. METOCLOPRAMIDE [Concomitant]
     Indication: PRODUCT USED FOR UNKNOWN INDICATION
     Route: 065
     Dates: start: 20130504
  11. PANTOPRAZOLE [Concomitant]
     Indication: PRODUCT USED FOR UNKNOWN INDICATION
     Route: 065
     Dates: start: 20130505
  12. LEVOMEPROMAZINE [Concomitant]
     Indication: PRODUCT USED FOR UNKNOWN INDICATION
     Route: 065
     Dates: start: 20130504
  13. TAZOCIN [Concomitant]
     Indication: PRODUCT USED FOR UNKNOWN INDICATION
     Route: 065
     Dates: start: 20130513
  14. ELECTROLYTES NOS/POLYETHYLENE GLYCOL [Concomitant]
     Indication: PRODUCT USED FOR UNKNOWN INDICATION
     Route: 065
  15. PARACETAMOL [Concomitant]
     Indication: PLEURAL EFFUSION
     Route: 065
     Dates: start: 20130506
  16. PARACETAMOL [Concomitant]
     Indication: PRODUCT USED FOR UNKNOWN INDICATION
     Route: 065
     Dates: start: 20130430

REACTIONS (3)
  - Pleural effusion [Unknown]
  - Febrile neutropenia [Unknown]
  - Hypophagia [Unknown]
